FAERS Safety Report 5326418-0 (Version None)
Quarter: 2007Q2

REPORT INFORMATION
  Report Type: 
  Country: None (occurrence: None)
  Receive Date: 20070516
  Receipt Date: 20070508
  Transmission Date: 20071010
  Serious: Yes (Other)
  Sender: FDA-Public Use
  Company Number: BR-JNJFOC-20070503055

PATIENT
  Age: 23 Year
  Sex: Male
  Weight: 65 kg

DRUGS (5)
  1. HALDOL [Suspect]
     Indication: AGITATION
     Route: 048
  2. HALDOL [Suspect]
     Indication: DEPRESSION
     Route: 048
  3. CLONAZEPAM [Concomitant]
     Indication: NERVOUS SYSTEM DISORDER
     Route: 048
  4. FLURAZEPAM HCL [Concomitant]
     Indication: SEDATIVE THERAPY
     Route: 048
  5. PROMETAZOL [Concomitant]
     Indication: DEPRESSION

REACTIONS (1)
  - WEIGHT INCREASED [None]
